FAERS Safety Report 15575549 (Version 1)
Quarter: 2018Q4

REPORT INFORMATION
  Report Type: Spontaneous
  Country: TW (occurrence: TW)
  Receive Date: 20181101
  Receipt Date: 20181101
  Transmission Date: 20190205
  Serious: Yes (Other)
  Sender: FDA-Public Use
  Company Number: TW-FRESENIUS KABI-FK201811274

PATIENT
  Age: 54 Year
  Sex: Female

DRUGS (8)
  1. IFOSFAMIDE. [Suspect]
     Active Substance: IFOSFAMIDE
     Indication: METASTASES TO ABDOMINAL CAVITY
  2. CISPLATIN (MANUFACTURER UNKNOWN) [Suspect]
     Active Substance: CISPLATIN
     Indication: FOLLICULAR DENDRITIC CELL SARCOMA
     Route: 065
  3. EPIRUBICIN [Suspect]
     Active Substance: EPIRUBICIN
     Indication: METASTASES TO ABDOMINAL CAVITY
  4. IFOSFAMIDE. [Suspect]
     Active Substance: IFOSFAMIDE
     Indication: FOLLICULAR DENDRITIC CELL SARCOMA
     Route: 065
  5. CISPLATIN (MANUFACTURER UNKNOWN) [Suspect]
     Active Substance: CISPLATIN
     Indication: METASTASES TO ABDOMINAL CAVITY
  6. EPIRUBICIN [Suspect]
     Active Substance: EPIRUBICIN
     Indication: FOLLICULAR DENDRITIC CELL SARCOMA
     Route: 065
  7. DACARBAZINE. [Suspect]
     Active Substance: DACARBAZINE
     Indication: FOLLICULAR DENDRITIC CELL SARCOMA
     Route: 065
  8. DACARBAZINE. [Suspect]
     Active Substance: DACARBAZINE
     Indication: METASTASES TO ABDOMINAL CAVITY

REACTIONS (1)
  - Tumour lysis syndrome [Recovered/Resolved]
